FAERS Safety Report 5922603-5 (Version None)
Quarter: 2008Q4

REPORT INFORMATION
  Report Type: 
  Country: None (occurrence: None)
  Receive Date: 20081017
  Receipt Date: 20081015
  Transmission Date: 20090506
  Serious: Yes (Death)
  Sender: FDA-Public Use
  Company Number: PHBS2008US05043

PATIENT
  Age: 11 Year
  Sex: Male
  Weight: 80 kg

DRUGS (12)
  1. PAMIDRONATE DISODIUM [Suspect]
     Indication: HYPERCALCAEMIA OF MALIGNANCY
     Dosage: 30 MG/DAY
     Route: 042
  2. CALCIUM [Suspect]
     Indication: HYPOCALCAEMIA
     Route: 048
  3. CALCIUM [Suspect]
     Route: 042
  4. CALCITRIOL [Suspect]
     Indication: HYPOCALCAEMIA
     Dosage: 0.25 UG, QD
     Route: 048
  5. FLUID/ELECTROLYTE REPLACEMENT THERAPY [Concomitant]
     Route: 042
  6. ASPARAGINASE [Concomitant]
     Indication: ACUTE LYMPHOCYTIC LEUKAEMIA
  7. VINCRISTINE [Concomitant]
     Indication: ACUTE LYMPHOCYTIC LEUKAEMIA
  8. DAUNORUBICIN HCL [Concomitant]
     Indication: ACUTE LYMPHOCYTIC LEUKAEMIA
  9. PREDNISONE TAB [Concomitant]
     Indication: ACUTE LYMPHOCYTIC LEUKAEMIA
  10. SODIUM PHOSPHATE [Concomitant]
  11. POTASSIUM PHOSPHATE DIBASIC [Concomitant]
  12. MAGNESIUM GLUCONATE [Concomitant]

REACTIONS (19)
  - ASTHENIA [None]
  - BLOOD AMYLASE INCREASED [None]
  - BLOOD MAGNESIUM DECREASED [None]
  - CALCIPHYLAXIS [None]
  - CARDIO-RESPIRATORY ARREST [None]
  - CONVULSION [None]
  - DIFFUSE ALVEOLAR DAMAGE [None]
  - HEPATIC STEATOSIS [None]
  - HYPERAESTHESIA [None]
  - HYPERTENSION [None]
  - HYPOCALCAEMIA [None]
  - HYPOPHOSPHATAEMIA [None]
  - HYPOTENSION [None]
  - IRRITABILITY [None]
  - PAIN [None]
  - PANCREATITIS CHRONIC [None]
  - POOR PERIPHERAL CIRCULATION [None]
  - PYREXIA [None]
  - RENAL TUBULAR NECROSIS [None]
